FAERS Safety Report 6322063-9 (Version None)
Quarter: 2009Q3

REPORT INFORMATION
  Report Type: 
  Country: None (occurrence: None)
  Receive Date: 20090824
  Receipt Date: 20090820
  Transmission Date: 20100115
  Serious: Yes (Death)
  Sender: FDA-Public Use
  Company Number: CN-ASTRAZENECA-2009SE08884

PATIENT
  Age: 46 Year
  Sex: Male

DRUGS (1)
  1. SYMBICORT [Suspect]
     Dosage: 2 INHALATIONS
     Route: 055
     Dates: start: 20090818, end: 20090819

REACTIONS (1)
  - CARDIAC DEATH [None]
